FAERS Safety Report 14394626 (Version 1)
Quarter: 2018Q1

REPORT INFORMATION
  Report Type: Spontaneous
  Country: FR (occurrence: FR)
  Receive Date: 20180116
  Receipt Date: 20180116
  Transmission Date: 20180509
  Serious: Yes (Other)
  Sender: FDA-Public Use
  Company Number: FR-PFIZER INC-2018013441

PATIENT
  Age: 71 Year
  Sex: Female
  Weight: 70 kg

DRUGS (9)
  1. TEMESTA (LORAZEPAM) [Concomitant]
     Active Substance: LORAZEPAM
  2. LEVOTHYROX [Concomitant]
     Active Substance: LEVOTHYROXINE
  3. DIMETAN [Suspect]
     Active Substance: BROMPHENIRAMINE MALEATE
     Indication: BRONCHITIS
     Dosage: UNK
     Route: 048
     Dates: start: 20171126
  4. PARACETAMOL [Concomitant]
     Active Substance: ACETAMINOPHEN
  5. ZITHROMAX [Suspect]
     Active Substance: AZITHROMYCIN DIHYDRATE
     Indication: BRONCHITIS
     Dosage: 2 DF, 1X/DAY
     Route: 048
     Dates: start: 20171126, end: 20171127
  6. CORTANCYL [Concomitant]
     Active Substance: PREDNISONE
  7. CALCIDOSE /00944201/ [Concomitant]
     Active Substance: CALCIUM CARBONATE\CHOLECALCIFEROL
  8. PANTOPRAZOLE [Concomitant]
     Active Substance: PANTOPRAZOLE
  9. PIVALONE /00803802/ [Concomitant]
     Active Substance: TIXOCORTOL PIVALATE

REACTIONS (5)
  - Amnesia [Recovering/Resolving]
  - Delirium [Recovering/Resolving]
  - Balance disorder [Recovering/Resolving]
  - Diarrhoea [Recovering/Resolving]
  - Hallucination [Recovering/Resolving]

NARRATIVE: CASE EVENT DATE: 20171127
